FAERS Safety Report 4507277-2 (Version None)
Quarter: 2005Q1

REPORT INFORMATION
  Report Type: 
  Country: None (occurrence: None)
  Receive Date: 20041025
  Receipt Date: 20040521
  Transmission Date: 20050727
  Serious: Yes (Hospitalization)
  Sender: FDA-Public Use
  Company Number: US-JNJFOC-20040505505

PATIENT
  Age: 54 Year
  Sex: Male
  Weight: 114.76 kg

DRUGS (7)
  1. INFLIXIMAB  (INFLIXIMAB, RECOMBINANT) LYOPHILIZED POWDER [Suspect]
     Indication: RHEUMATOID ARTHRITIS
     Dosage: 17.5 MG, 1 IN 1 WEEK, INTRAVENOUS
     Route: 042
     Dates: start: 20020403, end: 20021101
  2. METHOTREXATE [Concomitant]
  3. HUMIRA [Concomitant]
  4. IBUPROFEN [Concomitant]
  5. PREDNISONE [Concomitant]
  6. SERZONE [Concomitant]
  7. LOTENSIN (BENAZEPRIL HYROCHLORIDE) [Concomitant]

REACTIONS (1)
  - ACUTE MYOCARDIAL INFARCTION [None]
